FAERS Safety Report 15465205 (Version 1)
Quarter: 2018Q4

REPORT INFORMATION
  Report Type: Spontaneous
  Country: US (occurrence: US)
  Receive Date: 20181004
  Receipt Date: 20181004
  Transmission Date: 20190204
  Serious: No
  Sender: FDA-Public Use
  Company Number: US-JAZZ-2018-US-011659

PATIENT
  Age: 6 Year
  Sex: Male
  Weight: 17 kg

DRUGS (9)
  1. FLUTICASONE PROPIONATE. [Concomitant]
     Active Substance: FLUTICASONE PROPIONATE
  2. METHOTREXATE. [Concomitant]
     Active Substance: METHOTREXATE
  3. ERWINAZE [Suspect]
     Active Substance: ASPARAGINASE ERWINIA CHRYSANTHEMI
     Dosage: 18000 U
     Dates: start: 20180727
  4. DEXAMETHASONE. [Concomitant]
     Active Substance: DEXAMETHASONE
  5. ERWINAZE [Suspect]
     Active Substance: ASPARAGINASE ERWINIA CHRYSANTHEMI
     Indication: ACUTE LYMPHOCYTIC LEUKAEMIA
     Dosage: 18000 U
     Dates: start: 20180725
  6. DOXORUBICIN [Concomitant]
     Active Substance: DOXORUBICIN
  7. HYDROXYZINE [Concomitant]
     Active Substance: HYDROXYZINE HYDROCHLORIDE
  8. VINCRISTINE [Concomitant]
     Active Substance: VINCRISTINE
  9. ONDANSETRON [Concomitant]
     Active Substance: ONDANSETRON

REACTIONS (3)
  - Malaise [Unknown]
  - Yawning [Recovered/Resolved]
  - Abdominal pain [Unknown]

NARRATIVE: CASE EVENT DATE: 20180727
